FAERS Safety Report 9016411 (Version 3)
Quarter: 2013Q1

REPORT INFORMATION
  Report Type: Spontaneous
  Country: US (occurrence: US)
  Receive Date: 20130116
  Receipt Date: 20130121
  Transmission Date: 20140127
  Serious: Yes (Hospitalization)
  Sender: FDA-Public Use
  Company Number: US-GLAXOSMITHKLINE-A0993551A

PATIENT
  Age: 69 Year
  Sex: Female

DRUGS (1)
  1. FLOLAN [Suspect]
     Indication: PRODUCT USED FOR UNKNOWN INDICATION
     Dosage: 36NGKM CONTINUOUS
     Route: 042
     Dates: start: 20000111

REACTIONS (2)
  - Pruritus [Unknown]
  - Fluid retention [Unknown]
